FAERS Safety Report 17699338 (Version 1)
Quarter: 2020Q2

REPORT INFORMATION
  Report Type: Report from Study
  Country: CN (occurrence: CN)
  Receive Date: 20200423
  Receipt Date: 20200423
  Transmission Date: 20200714
  Serious: Yes (Other)
  Sender: FDA-Public Use
  Company Number: CN-JNJFOC-20200420989

PATIENT

DRUGS (4)
  1. REMICADE [Suspect]
     Active Substance: INFLIXIMAB
     Indication: CROHN^S DISEASE
     Route: 042
  2. AZATHIOPRINE. [Concomitant]
     Active Substance: AZATHIOPRINE
     Dosage: 2.0 TO 2.5 MG/KG
     Route: 065
  3. METHOTREXATE. [Concomitant]
     Active Substance: METHOTREXATE
     Route: 065
  4. 5-ASA [Concomitant]
     Active Substance: MESALAMINE
     Route: 065

REACTIONS (15)
  - Gastrointestinal procedural complication [Unknown]
  - Intra-abdominal fluid collection [Unknown]
  - Post procedural complication [Unknown]
  - Gastrointestinal haemorrhage [Unknown]
  - Stoma complication [Unknown]
  - Septic shock [Unknown]
  - Pyrexia [Unknown]
  - Anastomotic leak [Unknown]
  - Transfusion [Unknown]
  - Postoperative abscess [Unknown]
  - Post procedural infection [Unknown]
  - Post procedural diarrhoea [Unknown]
  - Postoperative ileus [Unknown]
  - Post procedural sepsis [Unknown]
  - Postoperative wound infection [Unknown]
